FAERS Safety Report 9357731 (Version 1)
Quarter: 2013Q2

REPORT INFORMATION
  Report Type: Spontaneous
  Country: GB (occurrence: GB)
  Receive Date: 20130620
  Receipt Date: 20130620
  Transmission Date: 20140414
  Serious: Yes (Other)
  Sender: FDA-Public Use
  Company Number: GB-PFIZER INC-2013181924

PATIENT
  Age: 51 Year
  Sex: Male
  Weight: 70 kg

DRUGS (17)
  1. INSPRA [Suspect]
     Indication: HYPERTENSION
     Dosage: 25 MG, 1X/DAY
     Route: 048
     Dates: start: 20130601, end: 20130605
  2. TICAGRELOR [Concomitant]
  3. NOVOMIX [Concomitant]
  4. INSULIN ISOPHANE PORCINE [Concomitant]
  5. AMLODIPINE [Concomitant]
  6. BISOPROLOL FUMARATE [Concomitant]
  7. DIGOXIN [Concomitant]
  8. FUROSEMID [Concomitant]
  9. GLICLAZIDE [Concomitant]
  10. LANSOPRAZOLE [Concomitant]
  11. METFORMIN [Concomitant]
  12. OMACOR [Concomitant]
  13. RAMIPRIL [Concomitant]
  14. ROSUVASTATIN [Concomitant]
  15. SERTRALINE [Concomitant]
  16. WARFARIN SODIUM [Concomitant]
  17. SILDENAFIL CITRATE [Concomitant]

REACTIONS (4)
  - Anaphylactic reaction [Recovering/Resolving]
  - Swelling face [Recovering/Resolving]
  - Wheezing [Recovering/Resolving]
  - Chest discomfort [Recovering/Resolving]
